FAERS Safety Report 6010280-7 (Version None)
Quarter: 2008Q4

REPORT INFORMATION
  Report Type: 
  Country: None (occurrence: None)
  Receive Date: 20081218
  Receipt Date: 20080613
  Transmission Date: 20090506
  Serious: No
  Sender: FDA-Public Use
  Company Number: A0723284A

PATIENT
  Age: 44 Year
  Sex: Female
  Weight: 59.1 kg

DRUGS (1)
  1. FLUTICASONE PROPIONATE [Suspect]
     Indication: NASAL DISORDER
     Dosage: 1SPR PER DAY
     Route: 045
     Dates: start: 20080101

REACTIONS (4)
  - MUCOSAL DISCOLOURATION [None]
  - PRODUCT QUALITY ISSUE [None]
  - SINUS HEADACHE [None]
  - SINUSITIS [None]
